FAERS Safety Report 5807343-5 (Version None)
Quarter: 2008Q3

REPORT INFORMATION
  Report Type: 
  Country: None (occurrence: None)
  Receive Date: 20080711
  Receipt Date: 20080630
  Transmission Date: 20090109
  Serious: Yes (Hospitalization)
  Sender: FDA-Public Use
  Company Number: US-WATSON-2008-03938

PATIENT
  Age: 27 Year
  Sex: Male

DRUGS (1)
  1. METHYLPREDNISOLONE [Suspect]
     Indication: PHAEOCHROMOCYTOMA MALIGNANT
     Dosage: 1.5 G
     Route: 042

REACTIONS (1)
  - PHAEOCHROMOCYTOMA [None]
